FAERS Safety Report 7864089-X (Version None)
Quarter: 2011Q4

REPORT INFORMATION
  Report Type: 
  Country: None (occurrence: None)
  Receive Date: 20111028
  Receipt Date: 20111024
  Transmission Date: 20120403
  Serious: Yes (Other)
  Sender: FDA-Public Use
  Company Number: US-JNJFOC-20110906504

PATIENT
  Sex: Female
  Weight: 109.5 kg

DRUGS (5)
  1. CARBOPLATIN [Concomitant]
     Route: 065
     Dates: start: 20110728, end: 20110728
  2. DOXORUBICIN HCL [Suspect]
     Route: 042
     Dates: start: 20110728, end: 20110728
  3. DOXORUBICIN HCL [Suspect]
     Indication: ENDOMETRIAL CANCER RECURRENT
     Route: 042
     Dates: start: 20110630, end: 20110630
  4. CARBOPLATIN [Concomitant]
     Indication: ENDOMETRIAL CANCER RECURRENT
     Route: 065
     Dates: start: 20110630, end: 20110630
  5. CARBOPLATIN [Concomitant]
     Route: 065
     Dates: start: 20110828, end: 20110828

REACTIONS (1)
  - DRUG DOSE OMISSION [None]
